FAERS Safety Report 7421711-X (Version None)
Quarter: 2011Q2

REPORT INFORMATION
  Report Type: 
  Country: None (occurrence: None)
  Receive Date: 20110418
  Receipt Date: 20100923
  Transmission Date: 20111010
  Serious: Yes (Other)
  Sender: FDA-Public Use
  Company Number: US-BAYER-201032468NA

PATIENT
  Age: 31 Year
  Sex: Female
  Weight: 61 kg

DRUGS (9)
  1. DICYCLOMINE [Concomitant]
     Indication: ABDOMINAL PAIN
  2. SYNTHROID [Concomitant]
  3. YAZ [Suspect]
     Indication: CONTRACEPTION
     Dosage: UNK
     Route: 048
     Dates: start: 20050101, end: 20091201
  4. YASMIN [Suspect]
     Indication: CONTRACEPTION
     Dosage: UNK
     Route: 048
     Dates: start: 20050101, end: 20091201
  5. YASMIN [Suspect]
     Dosage: UNK
     Route: 048
     Dates: start: 20070619
  6. YAZ [Suspect]
     Dosage: UNK
     Route: 048
     Dates: start: 20090710, end: 20090908
  7. LEVOTHYROXINE SODIUM [Concomitant]
     Indication: HYPOTHYROIDISM
     Dosage: UNK
     Dates: start: 20050101
  8. NEXIUM [Concomitant]
  9. YASMIN [Suspect]
     Dosage: UNK
     Route: 048
     Dates: start: 20060328

REACTIONS (4)
  - GALLBLADDER DISORDER [None]
  - PAIN [None]
  - BILE DUCT STENOSIS [None]
  - CHOLECYSTITIS CHRONIC [None]
